FAERS Safety Report 25503670 (Version 2)
Quarter: 2025Q3

REPORT INFORMATION
  Report Type: Spontaneous
  Country: EU (occurrence: EU)
  Receive Date: 20250702
  Receipt Date: 20250816
  Transmission Date: 20251021
  Serious: Yes (Congenital Anomaly, Other)
  Sender: AUROBINDO
  Company Number: EU-GSK-IT2025GSK071953

PATIENT
  Weight: 3.03 kg

DRUGS (8)
  1. FLECAINIDE [Suspect]
     Active Substance: FLECAINIDE
     Indication: Tachycardia foetal
     Dosage: 300 MILLIGRAM, ONCE A DAY
     Route: 064
  2. FLECAINIDE [Suspect]
     Active Substance: FLECAINIDE
     Indication: Hydrops foetalis
  3. DIGOXIN [Suspect]
     Active Substance: DIGOXIN
     Indication: Tachycardia foetal
     Dosage: 625 MICROGRAM, ONCE A DAY
     Route: 064
  4. DIGOXIN [Suspect]
     Active Substance: DIGOXIN
     Indication: Hydrops foetalis
     Dosage: 0.13 MICROGRAM, 3 TIMES A DAY
     Route: 064
  5. DIGOXIN [Suspect]
     Active Substance: DIGOXIN
     Indication: Cardiomegaly
  6. DIGOXIN [Suspect]
     Active Substance: DIGOXIN
     Indication: Mitral valve incompetence
  7. DIGOXIN [Suspect]
     Active Substance: DIGOXIN
     Indication: Tricuspid valve incompetence
  8. DIGOXIN [Suspect]
     Active Substance: DIGOXIN
     Indication: Sinus rhythm

REACTIONS (8)
  - Microcephaly [Unknown]
  - Pelvi-ureteric obstruction [Unknown]
  - Chromosomal deletion [Unknown]
  - Dysmorphism [Unknown]
  - Tremor neonatal [Unknown]
  - Feeling jittery [Unknown]
  - Premature baby [Unknown]
  - Foetal exposure during pregnancy [Unknown]
